FAERS Safety Report 10359177 (Version 1)
Quarter: 2014Q3

REPORT INFORMATION
  Report Type: Spontaneous
  Country: US (occurrence: None)
  Receive Date: 20140731
  Receipt Date: 20140731
  Transmission Date: 20150326
  Serious: No
  Sender: FDA-Public Use
  Company Number: None

PATIENT
  Age: 45 Year
  Sex: Male
  Weight: 75.3 kg

DRUGS (1)
  1. ACID CONTROLLER(FAMOTIDINE) 20 MG PREFFERED PLUS PHARMACY [Suspect]
     Active Substance: FAMOTIDINE
     Indication: GASTROOESOPHAGEAL REFLUX DISEASE
     Route: 048
     Dates: start: 20140718, end: 20140728

REACTIONS (4)
  - Abdominal discomfort [None]
  - Feeling abnormal [None]
  - Sleep disorder [None]
  - Decreased appetite [None]

NARRATIVE: CASE EVENT DATE: 20140728
